FAERS Safety Report 4713988-6 (Version None)
Quarter: 2005Q3

REPORT INFORMATION
  Report Type: 
  Country: None (occurrence: None)
  Receive Date: 20050712
  Receipt Date: 20050623
  Transmission Date: 20060218
  Serious: Yes (Death, Hospitalization)
  Sender: FDA-Public Use
  Company Number: GBS050617702

PATIENT
  Age: 43 Year
  Sex: Male

DRUGS (1)
  1. GEMCITABINE HYDROCHLORIDE-IV (GEMCITABINE) [Suspect]
     Indication: ADENOCARCINOMA PANCREAS
     Dates: start: 20030601

REACTIONS (18)
  - ABDOMINAL PAIN UPPER [None]
  - ABDOMINAL TENDERNESS [None]
  - CITROBACTER INFECTION [None]
  - CLOSTRIDIAL INFECTION [None]
  - DISORIENTATION [None]
  - ENTEROCOCCAL INFECTION [None]
  - GENERAL PHYSICAL HEALTH DETERIORATION [None]
  - HEPATOMEGALY [None]
  - HYPOTENSION [None]
  - KLEBSIELLA INFECTION [None]
  - LETHARGY [None]
  - LIVER ABSCESS [None]
  - MALAISE [None]
  - NEUTROPHILIA [None]
  - RENAL IMPAIRMENT [None]
  - SEPSIS [None]
  - SYNCOPE [None]
  - THROMBOCYTOPENIA [None]
